FAERS Safety Report 8676217 (Version 2)
Quarter: 2012Q4

REPORT INFORMATION
  Report Type: 
  Country: US (occurrence: US)
  Receive Date: 20120720
  Receipt Date: 20120901
  Transmission Date: 20130627
  Serious: No
  Sender: FDA-Public Use
  Company Number: US-009507513-1207USA005928

PATIENT

DRUGS (3)
  1. VICTRELIS [Suspect]
     Indication: HEPATITIS C
     Dosage: 800 mg, tid
     Route: 048
     Dates: start: 20111202
  2. PEGINTRON [Suspect]
     Indication: HEPATITIS C
     Dosage: 120 Microgram, qw
     Dates: start: 20111118
  3. RIBASPHERE [Suspect]
     Indication: HEPATITIS C

REACTIONS (3)
  - Anaemia [Unknown]
  - Lower respiratory tract infection [Unknown]
  - Ear infection [Unknown]
